FAERS Safety Report 20264400 (Version 1)
Quarter: 2021Q4

REPORT INFORMATION
  Report Type: Spontaneous
  Country: GR (occurrence: GR)
  Receive Date: 20211231
  Receipt Date: 20211231
  Transmission Date: 20220303
  Serious: Yes (Other)
  Sender: FDA-Public Use
  Company Number: GR-GLAXOSMITHKLINE-202101707972

PATIENT
  Age: 20 Year
  Sex: Female

DRUGS (6)
  1. ACETAMINOPHEN [Suspect]
     Active Substance: ACETAMINOPHEN
     Indication: Headache
     Dosage: UNK
     Route: 065
  2. FOSFOMYCIN CALCIUM [Suspect]
     Active Substance: FOSFOMYCIN CALCIUM
     Indication: Product used for unknown indication
     Dosage: UNK
     Route: 065
  3. ALUMINUM HYDROXIDE\MAGNESIUM CARBONATE [Suspect]
     Active Substance: ALUMINUM HYDROXIDE\MAGNESIUM CARBONATE
     Indication: Gastrooesophageal reflux disease
     Dosage: UNK
     Route: 065
  4. CEFUROXIME AXETIL [Suspect]
     Active Substance: CEFUROXIME AXETIL
     Indication: Urinary tract infection
     Dosage: UNK
     Route: 065
     Dates: start: 20211120
  5. TOZINAMERAN [Suspect]
     Active Substance: TOZINAMERAN
     Indication: COVID-19 immunisation
     Dosage: 2 DF, QD
     Route: 030
     Dates: start: 20211004, end: 20211004
  6. IBUPROFEN [Suspect]
     Active Substance: IBUPROFEN
     Indication: Dysmenorrhoea
     Dosage: UNK
     Route: 065
     Dates: start: 20211121

REACTIONS (17)
  - Chills [Unknown]
  - Gastric disorder [Unknown]
  - Cross sensitivity reaction [Unknown]
  - Feeling cold [Unknown]
  - Drug intolerance [Unknown]
  - Gastrooesophageal reflux disease [Unknown]
  - Headache [Unknown]
  - Diarrhoea [Unknown]
  - Vomiting [Unknown]
  - Urinary tract infection [Unknown]
  - Cheilitis [Unknown]
  - Blood pressure increased [Unknown]
  - Constipation [Unknown]
  - Drug ineffective [Unknown]
  - Tachycardia [Unknown]
  - Rash [Unknown]
  - Pruritus [Unknown]

NARRATIVE: CASE EVENT DATE: 20211120
